FAERS Safety Report 5375233-0 (Version None)
Quarter: 2007Q2

REPORT INFORMATION
  Report Type: 
  Country: None (occurrence: None)
  Receive Date: 20070629
  Receipt Date: 20060829
  Transmission Date: 20071010
  Serious: Yes (Other)
  Sender: FDA-Public Use
  Company Number: US-ASTRAZENECA-2006UW17074

PATIENT
  Age: 55 Year
  Sex: Female
  Weight: 61.2 kg

DRUGS (3)
  1. TAMOXIFEN CITRATE [Suspect]
     Indication: BREAST CANCER FEMALE
     Route: 048
  2. LIPITOR [Concomitant]
  3. PRILOSEC [Concomitant]

REACTIONS (1)
  - RECURRENT CANCER [None]
